FAERS Safety Report 23170662 (Version 1)
Quarter: 2023Q4

REPORT INFORMATION
  Report Type: Spontaneous
  Country: CN (occurrence: CN)
  Receive Date: 20231110
  Receipt Date: 20231110
  Transmission Date: 20240110
  Serious: Yes (Other)
  Sender: FDA-Public Use
  Company Number: CN-BAYER-2023A156677

PATIENT
  Age: 79 Year
  Sex: Female
  Weight: 90 kg

DRUGS (2)
  1. KERENDIA [Suspect]
     Active Substance: FINERENONE
     Indication: Diabetic nephropathy
     Dosage: 20 MG, QD
     Route: 048
     Dates: start: 20231015, end: 20231026
  2. KERENDIA [Suspect]
     Active Substance: FINERENONE
     Indication: Proteinuria

REACTIONS (2)
  - Vulvovaginal pruritus [Recovered/Resolved]
  - Insomnia [None]

NARRATIVE: CASE EVENT DATE: 20231023
